FAERS Safety Report 5321495-5 (Version None)
Quarter: 2007Q2

REPORT INFORMATION
  Report Type: 
  Country: None (occurrence: None)
  Receive Date: 20070510
  Receipt Date: 20070503
  Transmission Date: 20071010
  Serious: Yes (Other)
  Sender: FDA-Public Use
  Company Number: CH-ASTRAZENECA-2007PK00954

PATIENT
  Age: 78 Year
  Sex: Female

DRUGS (4)
  1. TENORMIN [Suspect]
     Indication: ESSENTIAL HYPERTENSION
     Route: 048
     Dates: start: 19970101
  2. OMEPRAZOLE [Concomitant]
     Route: 048
  3. PENICILLIN V [Concomitant]
     Indication: BACTERIAL INFECTION
     Route: 048
     Dates: start: 20070301
  4. SINTROM [Concomitant]
     Route: 048

REACTIONS (1)
  - INSOMNIA [None]
